FAERS Safety Report 4428904-4 (Version None)
Quarter: 2004Q3

REPORT INFORMATION
  Report Type: 
  Country: None (occurrence: None)
  Receive Date: 20040816
  Receipt Date: 20040730
  Transmission Date: 20050211
  Serious: Yes (Hospitalization, Disabling)
  Sender: FDA-Public Use
  Company Number: 04P-163-0248089

PATIENT
  Age: 40 Year
  Sex: Female

DRUGS (9)
  1. NORVIR [Suspect]
     Indication: HIV INFECTION
     Dosage: 400 MG, 1 IN D, PER ORAL
     Route: 048
     Dates: start: 20030501, end: 20031222
  2. TIPRANAVIR [Concomitant]
  3. EFAVIRENZ [Concomitant]
  4. VIREAD [Concomitant]
  5. ANLODIPINE BESILATE [Concomitant]
  6. LISINOPRIL [Concomitant]
  7. AZITHROMYCIN [Concomitant]
  8. PROTONIL [Concomitant]
  9. DOCUSATE SODIUM [Concomitant]

REACTIONS (6)
  - CEREBRAL HAEMORRHAGE [None]
  - CEREBROVASCULAR ACCIDENT [None]
  - CONDITION AGGRAVATED [None]
  - DYSARTHRIA [None]
  - HEMIPARESIS [None]
  - HYPERTENSION [None]
